FAERS Safety Report 4385118-4 (Version None)
Quarter: 2004Q2

REPORT INFORMATION
  Report Type: 
  Country: None (occurrence: None)
  Receive Date: 20040624
  Receipt Date: 20040624
  Transmission Date: 20050107
  Serious: Yes (Hospitalization)
  Sender: FDA-Public Use
  Company Number: None

PATIENT
  Age: 58 Year
  Sex: Female
  Weight: 29.0302 kg

DRUGS (8)
  1. TOPOTECAN 1 MG/ML GLAXOSMITHKLINE [Suspect]
     Indication: OVARIAN CANCER
     Dosage: 0.4 MG/DAY CIV X 21 D IV
     Route: 042
     Dates: start: 20040526, end: 20040609
  2. ANZEMET [Concomitant]
  3. ATIVAN [Concomitant]
  4. ZOFRAN [Concomitant]
  5. PEPCID AC [Concomitant]
  6. KYTRIL [Concomitant]
  7. FOSAMAX [Concomitant]
  8. COUMADIN [Concomitant]

REACTIONS (5)
  - ABDOMINAL PAIN [None]
  - HAEMOGLOBIN DECREASED [None]
  - NAUSEA [None]
  - URINARY TRACT INFECTION [None]
  - VOMITING [None]
